FAERS Safety Report 4324660-9 (Version None)
Quarter: 2004Q1

REPORT INFORMATION
  Report Type: 
  Country: None (occurrence: None)
  Receive Date: 20040322
  Receipt Date: 20040309
  Transmission Date: 20041129
  Serious: Yes (Hospitalization)
  Sender: FDA-Public Use
  Company Number: JP-JNJFOC-20040302055

PATIENT
  Age: 41 Year
  Sex: Male

DRUGS (5)
  1. LEVOFLOXACIN [Suspect]
     Indication: LEGIONELLA INFECTION
     Dosage: ORAL
     Route: 048
     Dates: start: 20031219, end: 20031222
  2. PREVISCAN (FLUINDIONE) TABLETS [Suspect]
     Indication: PHLEBITIS
     Dosage: 0.75 MG, ORAL
     Route: 048
     Dates: start: 20030307, end: 20031222
  3. VIDEX [Concomitant]
  4. TRIZIVIR [Concomitant]
  5. CEFUROXIME AXETIL [Concomitant]

REACTIONS (4)
  - ABDOMINAL PAIN [None]
  - ANAEMIA [None]
  - HAEMATURIA [None]
  - INTERNATIONAL NORMALISED RATIO INCREASED [None]
